FAERS Safety Report 4700265-2 (Version None)
Quarter: 2005Q2

REPORT INFORMATION
  Report Type: 
  Country: None (occurrence: None)
  Receive Date: 20050209
  Receipt Date: 20050209
  Transmission Date: 20051028
  Serious: Yes (Other)
  Sender: FDA-Public Use
  Company Number: None

PATIENT
  Sex: Female
  Weight: 90.7194 kg

DRUGS (2)
  1. CLOZARIL [Suspect]
     Indication: BIPOLAR DISORDER
     Dates: start: 20010901
  2. CLOZARIL [Suspect]
     Indication: SCHIZOAFFECTIVE DISORDER
     Dates: start: 20010901

REACTIONS (4)
  - HALLUCINATION, VISUAL [None]
  - INSOMNIA [None]
  - MOOD ALTERED [None]
  - VISUAL DISTURBANCE [None]
